FAERS Safety Report 16469199 (Version 1)
Quarter: 2019Q2

REPORT INFORMATION
  Report Type: Spontaneous
  Country: CN (occurrence: CN)
  Receive Date: 20190624
  Receipt Date: 20190624
  Transmission Date: 20190711
  Serious: Yes (Hospitalization, Other)
  Sender: FDA-Public Use
  Company Number: CN-BRACCO-2019CN03065

PATIENT
  Age: 78 Year
  Sex: Female

DRUGS (2)
  1. IOPAMIRO [Suspect]
     Active Substance: IOPAMIDOL
     Indication: COMPUTERISED TOMOGRAM CORONARY ARTERY
     Dosage: 37 G, SINGLE
     Route: 041
     Dates: start: 20190415, end: 20190415
  2. THIOCTIC ACID [Concomitant]
     Active Substance: THIOCTIC ACID
     Dosage: UNK
     Dates: end: 20190416

REACTIONS (6)
  - Urine output decreased [Recovering/Resolving]
  - Renal impairment [Recovering/Resolving]
  - Dyspnoea [Recovering/Resolving]
  - Asthenia [Recovering/Resolving]
  - Hyperhidrosis [Recovering/Resolving]
  - Cardiac failure [Recovering/Resolving]

NARRATIVE: CASE EVENT DATE: 20190416
